FAERS Safety Report 22112971 (Version 3)
Quarter: 2023Q2

REPORT INFORMATION
  Report Type: Spontaneous
  Country: US (occurrence: US)
  Receive Date: 20230320
  Receipt Date: 20230413
  Transmission Date: 20230722
  Serious: No
  Sender: FDA-Public Use
  Company Number: US-LUPIN PHARMACEUTICALS INC.-2023-02067

PATIENT

DRUGS (4)
  1. MISOPROSTOL [Suspect]
     Active Substance: MISOPROSTOL
     Indication: Abortion induced
     Dosage: UNK (1ST PILL)
     Route: 065
     Dates: start: 20230222, end: 20230222
  2. MISOPROSTOL [Suspect]
     Active Substance: MISOPROSTOL
     Dosage: UNK (2ND PILL)
     Route: 065
     Dates: start: 20230227, end: 20230227
  3. MIFEPREX [Suspect]
     Active Substance: MIFEPRISTONE
     Indication: Abortion induced
     Dosage: UNK (1ST PILL)
     Route: 065
     Dates: start: 20230222, end: 20230222
  4. MIFEPREX [Suspect]
     Active Substance: MIFEPRISTONE
     Dosage: UNK (2ND PILL)
     Route: 065
     Dates: start: 20230227, end: 20230227

REACTIONS (4)
  - Off label use [Unknown]
  - Exposure during pregnancy [Unknown]
  - Extra dose administered [Unknown]
  - Drug ineffective for unapproved indication [Unknown]
